FAERS Safety Report 6560123-8 (Version None)
Quarter: 2010Q1

REPORT INFORMATION
  Report Type: 
  Country: None (occurrence: None)
  Receive Date: 20100129
  Receipt Date: 20050225
  Transmission Date: 20100710
  Serious: No
  Sender: FDA-Public Use
  Company Number: US-ALLERGAN-200410732

PATIENT
  Age: 57 Year
  Sex: Female
  Weight: 53.636 kg

DRUGS (5)
  1. BOTOX [Suspect]
     Indication: TORTICOLLIS
     Dosage: 200UNITS, PRN
     Route: 030
     Dates: start: 20020801
  2. NEURONTIN [Concomitant]
     Indication: ESSENTIAL TREMOR
  3. THYROID TAB [Concomitant]
     Indication: HYPOTHYROIDISM
  4. OXYCODONE [Concomitant]
     Indication: DRUG USE FOR UNKNOWN INDICATION
     Dosage: 5MG, PRN
     Route: 048
  5. DIAZEPAM [Concomitant]
     Indication: DRUG USE FOR UNKNOWN INDICATION
     Route: 048

REACTIONS (3)
  - INFLUENZA LIKE ILLNESS [None]
  - MUSCLE SPASMS [None]
  - NECK PAIN [None]
